FAERS Safety Report 8237921-8 (Version None)
Quarter: 2012Q1

REPORT INFORMATION
  Report Type: 
  Country: None (occurrence: None)
  Receive Date: 20120327
  Receipt Date: 20120321
  Transmission Date: 20120608
  Serious: Yes (Other)
  Sender: FDA-Public Use
  Company Number: US-PFIZER INC-2012074601

PATIENT
  Sex: Female
  Weight: 79.4 kg

DRUGS (6)
  1. LUVOX [Concomitant]
     Indication: OBSESSIVE-COMPULSIVE DISORDER
     Dosage: 50 MG, DAILY
  2. RESTORIL [Concomitant]
     Indication: INSOMNIA
     Dosage: UNK
  3. LYRICA [Suspect]
     Indication: PAIN
     Dosage: 50 MG, DAILY
     Route: 048
     Dates: start: 20120201, end: 20120101
  4. CLONIDINE [Concomitant]
     Dosage: UNK
  5. GEODON [Concomitant]
     Indication: BIPOLAR I DISORDER
     Dosage: 40MG, DAILY
  6. ATIVAN [Concomitant]
     Indication: GENERALISED ANXIETY DISORDER
     Dosage: 3 MG, DAILY

REACTIONS (4)
  - SUICIDAL IDEATION [None]
  - HALLUCINATION [None]
  - MOOD SWINGS [None]
  - HALLUCINATION, AUDITORY [None]
